FAERS Safety Report 11125508 (Version 1)
Quarter: 2015Q2

REPORT INFORMATION
  Report Type: Spontaneous
  Country: US (occurrence: US)
  Receive Date: 20150520
  Receipt Date: 20150520
  Transmission Date: 20150821
  Serious: No
  Sender: FDA-Public Use
  Company Number: US-PFIZER INC-2015166107

PATIENT
  Age: 68 Year
  Sex: Male
  Weight: 106.12 kg

DRUGS (4)
  1. NARDIL [Suspect]
     Active Substance: PHENELZINE SULFATE
     Dosage: 60 MG, 1X/DAY
  2. DIAZEPAM. [Concomitant]
     Active Substance: DIAZEPAM
     Dosage: 5.4 ML, DAILY
  3. NARDIL [Suspect]
     Active Substance: PHENELZINE SULFATE
     Indication: DEPRESSION
     Dosage: 90 MG, 1X/DAY
  4. NARDIL [Suspect]
     Active Substance: PHENELZINE SULFATE
     Dosage: 75 MG, 1X/DAY

REACTIONS (2)
  - Drug withdrawal syndrome [Unknown]
  - Intentional product misuse [Unknown]
